FAERS Safety Report 7950218-6 (Version None)
Quarter: 2011Q4

REPORT INFORMATION
  Report Type: 
  Country: None (occurrence: None)
  Receive Date: 20111130
  Receipt Date: 20111117
  Transmission Date: 20120403
  Serious: Yes (Hospitalization)
  Sender: FDA-Public Use
  Company Number: BR-MEDIMMUNE-MEDI-0013489

PATIENT
  Sex: Male
  Weight: 10.8 kg

DRUGS (4)
  1. SYNAGIS [Suspect]
     Dates: start: 20110623, end: 20110721
  2. LARVIC [Concomitant]
     Route: 048
     Dates: start: 20100127, end: 20110610
  3. SYNAGIS [Suspect]
     Indication: CARDIAC DISORDER
     Dates: start: 20110407, end: 20110505
  4. LARVIC [Concomitant]
     Route: 048
     Dates: start: 20110601, end: 20110804

REACTIONS (9)
  - BRONCHITIS [None]
  - COUGH [None]
  - DIARRHOEA [None]
  - PNEUMONIA [None]
  - FATIGUE [None]
  - CYANOSIS [None]
  - RESPIRATORY RATE DECREASED [None]
  - PYREXIA [None]
  - OXYGEN SATURATION DECREASED [None]
